FAERS Safety Report 9137986 (Version 1)
Quarter: 2013Q1

REPORT INFORMATION
  Report Type: Spontaneous
  Country: GB (occurrence: GB)
  Receive Date: 20130304
  Receipt Date: 20130304
  Transmission Date: 20140127
  Serious: Yes (Life-Threatening, Hospitalization, Other)
  Sender: FDA-Public Use
  Company Number: GB-ASTRAZENECA-2013SE13070

PATIENT
  Age: 60 Year
  Sex: Female
  Weight: 78 kg

DRUGS (5)
  1. BUDESONIDE [Suspect]
     Indication: CROHN^S DISEASE
     Route: 048
     Dates: start: 20121109, end: 20130131
  2. BUSCOPAN [Concomitant]
  3. HRT [Concomitant]
  4. LOPERAMIDE [Concomitant]
  5. MESALAZINE [Concomitant]

REACTIONS (5)
  - Hypertension [Not Recovered/Not Resolved]
  - Paraesthesia [Unknown]
  - Muscle spasms [Unknown]
  - Oedema [Unknown]
  - Visual impairment [Unknown]
